FAERS Safety Report 22928445 (Version 2)
Quarter: 2023Q4

REPORT INFORMATION
  Report Type: Report from Study
  Country: PR (occurrence: US)
  Receive Date: 20230911
  Receipt Date: 20231218
  Transmission Date: 20240110
  Serious: No
  Sender: FDA-Public Use
  Company Number: PR-002147023-NVSC2023US195397

PATIENT
  Sex: Female

DRUGS (1)
  1. ENTRESTO [Suspect]
     Active Substance: SACUBITRIL\VALSARTAN
     Indication: Cardiac failure
     Dosage: 49 MG, BID
     Route: 065
     Dates: start: 20230906

REACTIONS (4)
  - Asthenia [Unknown]
  - Speech disorder [Unknown]
  - Cardiac disorder [Unknown]
  - Depressed mood [Unknown]
